FAERS Safety Report 20372438 (Version 1)
Quarter: 2022Q1

REPORT INFORMATION
  Report Type: Spontaneous
  Country: US (occurrence: None)
  Receive Date: 20220124
  Receipt Date: 20220124
  Transmission Date: 20220423
  Serious: No
  Sender: FDA-Public Use
  Company Number: US-MDD US Operations-SUP202111-002400

PATIENT
  Age: 16 Year
  Sex: Female

DRUGS (3)
  1. QELBREE [Suspect]
     Active Substance: VILOXAZINE HYDROCHLORIDE
     Indication: Product used for unknown indication
     Dosage: 200MG
     Dates: start: 20211117
  2. LEVOTHYROXINE [Concomitant]
     Active Substance: LEVOTHYROXINE
     Dosage: 100 MCG
  3. VitaminD [Concomitant]
     Dosage: NOT PROVIDED

REACTIONS (2)
  - Hallucination [Unknown]
  - Loss of consciousness [Unknown]

NARRATIVE: CASE EVENT DATE: 20211117
